FAERS Safety Report 8985222 (Version 2)
Quarter: 2013Q1

REPORT INFORMATION
  Report Type: Report from Study
  Country: US (occurrence: US)
  Receive Date: 20121226
  Receipt Date: 20130108
  Transmission Date: 20140127
  Serious: Yes (Hospitalization)
  Sender: FDA-Public Use
  Company Number: US-JNJFOC-20121209214

PATIENT
  Age: 69 Year
  Sex: Male

DRUGS (18)
  1. ACETAMINOPHEN [Suspect]
     Route: 065
  2. ACETAMINOPHEN [Suspect]
     Indication: PRODUCT USED FOR UNKNOWN INDICATION
     Route: 065
  3. SENOKOT [Concomitant]
  4. AMIODARONE [Concomitant]
     Route: 065
  5. ASPIRIN [Concomitant]
     Route: 065
  6. CARVEDILOL [Concomitant]
     Route: 065
  7. DOCUSATE SODIUM [Concomitant]
     Route: 065
  8. FERROUS SULFATE [Concomitant]
     Route: 065
  9. FUROSEMIDE [Concomitant]
     Route: 065
  10. MAGNESIUM OXIDE [Concomitant]
     Route: 065
  11. MULTIVITAMINS [Concomitant]
     Route: 065
  12. PERCOCET [Concomitant]
     Route: 065
  13. PANTOPRAZOLE [Concomitant]
     Route: 065
  14. MIRALAX [Concomitant]
     Route: 065
  15. POTASSIUM CHLORIDE [Concomitant]
     Route: 065
  16. SENNOSIDE [Concomitant]
     Route: 065
  17. WARFARIN [Concomitant]
     Route: 065
  18. IRON SUPPLEMENT [Concomitant]

REACTIONS (5)
  - Cardiac failure [Recovered/Resolved]
  - Unresponsive to stimuli [Recovered/Resolved]
  - Mental status changes [Recovered/Resolved]
  - Dyspnoea [Recovered/Resolved]
  - Sputum discoloured [Recovered/Resolved]
